FAERS Safety Report 6148700-X (Version None)
Quarter: 2009Q2

REPORT INFORMATION
  Report Type: 
  Country: None (occurrence: None)
  Receive Date: 20090406
  Receipt Date: 20090406
  Transmission Date: 20091009
  Serious: No
  Sender: FDA-Public Use
  Company Number: None

PATIENT
  Age: 17 Year
  Sex: Female
  Weight: 43.5453 kg

DRUGS (1)
  1. MOMETASONE FUROATE [Suspect]

REACTIONS (1)
  - OROPHARYNGEAL PAIN [None]
